FAERS Safety Report 4600067-1 (Version None)
Quarter: 2005Q1

REPORT INFORMATION
  Report Type: 
  Country: None (occurrence: None)
  Receive Date: 20050303
  Receipt Date: 20050215
  Transmission Date: 20050727
  Serious: Yes (Hospitalization)
  Sender: FDA-Public Use
  Company Number: F01200401226

PATIENT
  Age: 65 Year
  Sex: Male

DRUGS (7)
  1. (OXALIPLATIN) - SOLUTION - 260 MG [Suspect]
     Indication: COLORECTAL CANCER METASTATIC
     Dosage: 260 MG Q3W, 2000 MG TWICE A DAY FROM DAY 1 TO DAY 15, INTRAVENOUS
     Route: 042
     Dates: start: 20040324, end: 20040324
  2. (CAPECITABINE) - TABLET - 2000 MG [Suspect]
     Dosage: 200 MG TWICE ADAY FROM DAY 1 TO DAY15,Q3W, ORAL
     Route: 048
     Dates: start: 20040324, end: 20040404
  3. LOSEC (OMEPRAZOLE) [Concomitant]
  4. AVALIDE [Concomitant]
  5. JUICE PLUS (NUTRITIONAL SUPPLEMENT) [Concomitant]
  6. ESSIAC TEA (ARCTIUM/RHUBARB/RUMEX ACETOSELLA/SLIPPERY ELM) [Concomitant]
  7. COUMADIN [Concomitant]

REACTIONS (2)
  - ENTERITIS [None]
  - SMALL INTESTINAL OBSTRUCTION [None]
